FAERS Safety Report 7518342-X (Version None)
Quarter: 2011Q2

REPORT INFORMATION
  Report Type: 
  Country: None (occurrence: None)
  Receive Date: 20110602
  Receipt Date: 20090822
  Transmission Date: 20111010
  Serious: Yes (Hospitalization, Other)
  Sender: FDA-Public Use
  Company Number: US-BAYER-200930689NA

PATIENT
  Age: 75 Year
  Sex: Male
  Weight: 91 kg

DRUGS (20)
  1. TRASYLOL [Suspect]
     Indication: CORONARY ARTERY BYPASS
     Dosage: 1 ML, ONCE, INTIAL TEST DOSE
     Route: 042
     Dates: start: 20050601, end: 20050601
  2. RED BLOOD CELLS [Concomitant]
     Dosage: 400 ML
     Route: 042
     Dates: start: 20050601
  3. COZAAR [Concomitant]
     Dosage: 100 MG, QD
     Route: 048
     Dates: start: 20050527, end: 20050707
  4. LASIX [Concomitant]
     Dosage: UNK
     Route: 048
     Dates: start: 20050523
  5. TRASYLOL [Suspect]
     Indication: AORTIC VALVE REPLACEMENT
     Dosage: 200ML LOADING DOSE
     Route: 042
     Dates: start: 20050601, end: 20050601
  6. ZOCOR [Concomitant]
     Dosage: 20 MG, QD
     Route: 048
     Dates: start: 20050527, end: 20050707
  7. VANCOMYCIN [Concomitant]
     Dosage: 500 MG
     Route: 042
     Dates: start: 20050601, end: 20050601
  8. NORVASC [Concomitant]
     Dosage: 10 MG, QD
     Route: 048
     Dates: start: 20050527
  9. CARDURA [Concomitant]
     Dosage: 4 MG, BID
     Route: 048
     Dates: start: 20050527, end: 20050707
  10. TRASYLOL [Suspect]
     Dosage: 50 CC/HR INFUSION
     Route: 042
     Dates: start: 20050601, end: 20050601
  11. COREG [Concomitant]
     Dosage: UNK
     Route: 048
     Dates: start: 20030101
  12. ACTOS [Concomitant]
     Dosage: 45 MG, QD
     Route: 048
     Dates: start: 19990101
  13. ACETYLSALICYLIC ACID SRT [Concomitant]
     Dosage: 81 MG
     Route: 048
     Dates: start: 19970812
  14. GLIPIZIDE [Concomitant]
     Dosage: 10 MG, BID
     Route: 048
  15. LASIX [Concomitant]
     Dosage: 40MG
     Route: 042
     Dates: start: 20050601, end: 20050601
  16. HEPARIN [Concomitant]
     Dosage: MULTIPLE DOSES
     Dates: start: 20050601
  17. WHOLE BLOOD [Concomitant]
     Dosage: 300 ML
     Route: 042
     Dates: start: 20050601
  18. PROTAMINE SULFATE [Concomitant]
     Dosage: 300MG
     Dates: start: 20050601
  19. PRIMACOR [Concomitant]
     Dosage: UNK
     Dates: start: 20050601
  20. NITROGLYCERIN [Concomitant]
     Dosage: UNK
     Dates: start: 20050601

REACTIONS (11)
  - RENAL FAILURE [None]
  - PAIN [None]
  - INJURY [None]
  - STRESS [None]
  - ANXIETY [None]
  - EMOTIONAL DISTRESS [None]
  - UNEVALUABLE EVENT [None]
  - RENAL TRANSPLANT [None]
  - RENAL IMPAIRMENT [None]
  - RENAL INJURY [None]
  - FEAR [None]
